FAERS Safety Report 21255940 (Version 6)
Quarter: 2024Q1

REPORT INFORMATION
  Report Type: Report from Study
  Country: US (occurrence: US)
  Receive Date: 20220825
  Receipt Date: 20240318
  Transmission Date: 20240410
  Serious: Yes (Hospitalization, Other)
  Sender: FDA-Public Use
  Company Number: US-ABBVIE-22K-163-4514428-00

PATIENT
  Age: 67 Year
  Sex: Female

DRUGS (3)
  1. SKYRIZI [Suspect]
     Active Substance: RISANKIZUMAB-RZAA
     Indication: Psoriasis
     Dosage: HAVE BEEN TAKING OVER A YEAR AND HALF
     Route: 058
  2. SKYRIZI [Suspect]
     Active Substance: RISANKIZUMAB-RZAA
     Indication: Psoriasis
  3. RINVOQ [Suspect]
     Active Substance: UPADACITINIB
     Indication: Psoriasis
     Route: 048

REACTIONS (12)
  - Blindness transient [Recovered/Resolved]
  - Surgery [Unknown]
  - Anxiety [Unknown]
  - Blindness [Unknown]
  - Appendicitis perforated [Unknown]
  - Hospitalisation [Unknown]
  - Posterior reversible encephalopathy syndrome [Unknown]
  - Palpitations [Unknown]
  - Musculoskeletal disorder [Unknown]
  - Appendicitis [Unknown]
  - Immune system disorder [Recovering/Resolving]
  - Aphasia [Unknown]

NARRATIVE: CASE EVENT DATE: 20220701
